FAERS Safety Report 20788566 (Version 1)
Quarter: 2022Q2

REPORT INFORMATION
  Report Type: Spontaneous
  Country: US (occurrence: US)
  Receive Date: 20220505
  Receipt Date: 20220505
  Transmission Date: 20220721
  Serious: Yes (Hospitalization)
  Sender: FDA-Public Use
  Company Number: US-MYLANLABS-2022M1032367

PATIENT
  Age: 21 Month
  Sex: Female

DRUGS (1)
  1. CLONAZEPAM [Suspect]
     Active Substance: CLONAZEPAM
     Indication: Product used for unknown indication
     Dosage: UNK
     Route: 065

REACTIONS (6)
  - Accidental exposure to product by child [Recovered/Resolved]
  - Toxicity to various agents [Recovered/Resolved]
  - Gait disturbance [Recovered/Resolved]
  - Ataxia [Recovered/Resolved]
  - Leukocytosis [Recovered/Resolved]
  - Thrombocytosis [Recovered/Resolved]
